FAERS Safety Report 19117227 (Version 1)
Quarter: 2021Q2

REPORT INFORMATION
  Report Type: Spontaneous
  Country: GB (occurrence: GB)
  Receive Date: 20210409
  Receipt Date: 20210409
  Transmission Date: 20210717
  Serious: Yes (Other)
  Sender: FDA-Public Use
  Company Number: GB-TEVA-2021-GB-1897880

PATIENT
  Age: 56 Year
  Sex: Female
  Weight: 73.47 kg

DRUGS (1)
  1. TEVA UK LEVOTHYROXINE [Suspect]
     Active Substance: LEVOTHYROXINE
     Dosage: 25 MG
     Route: 048
     Dates: start: 20200707, end: 20200722

REACTIONS (6)
  - Asthenia [Recovered/Resolved]
  - Limb discomfort [Recovered/Resolved]
  - Disturbance in attention [Recovered/Resolved]
  - Lethargy [Recovered/Resolved]
  - Feeling abnormal [Unknown]
  - Fatigue [Recovered/Resolved]

NARRATIVE: CASE EVENT DATE: 20200711
